FAERS Safety Report 20191382 (Version 1)
Quarter: 2021Q4

REPORT INFORMATION
  Report Type: Spontaneous
  Country: JP (occurrence: JP)
  Receive Date: 20211216
  Receipt Date: 20211216
  Transmission Date: 20220303
  Serious: Yes (Hospitalization, Other)
  Sender: FDA-Public Use
  Company Number: JP-SUN PHARMACEUTICAL INDUSTRIES LTD-2021RR-320795

PATIENT
  Age: 66 Year
  Sex: Female

DRUGS (5)
  1. DIAZEPAM [Suspect]
     Active Substance: DIAZEPAM
     Indication: Catatonia
     Dosage: 10 MILLIGRAM, UNK
     Route: 042
  2. LEVETIRACETAM [Suspect]
     Active Substance: LEVETIRACETAM
     Indication: Catatonia
     Dosage: 1000 MILLIGRAM, DAILY
     Route: 065
  3. FOSPHENYTOIN [Suspect]
     Active Substance: FOSPHENYTOIN
     Indication: Catatonia
     Dosage: 750 MILLIGRAM, UNK
     Route: 042
  4. VALPROIC ACID [Suspect]
     Active Substance: VALPROIC ACID
     Indication: Catatonia
     Dosage: 600 MILLIGRAM, DAILY
     Route: 065
  5. LORAZEPAM [Concomitant]
     Active Substance: LORAZEPAM
     Indication: Catatonia
     Dosage: 1.5 MILLIGRAM, UNK
     Route: 048

REACTIONS (4)
  - Altered state of consciousness [Recovering/Resolving]
  - Disorientation [Recovering/Resolving]
  - Aphasia [Recovered/Resolved]
  - Drug ineffective [Unknown]
